FAERS Safety Report 21377856 (Version 1)
Quarter: 2022Q3

REPORT INFORMATION
  Report Type: Spontaneous
  Country: None (occurrence: GB)
  Receive Date: 20220926
  Receipt Date: 20220926
  Transmission Date: 20221027
  Serious: Yes (Hospitalization, Other)
  Sender: FDA-Public Use
  Company Number: GB-Breckenridge Pharmaceutical, Inc.-2133203

PATIENT
  Sex: Male

DRUGS (7)
  1. OMEPRAZOLE [Suspect]
     Active Substance: OMEPRAZOLE
     Route: 048
  2. NINLARO [Suspect]
     Active Substance: IXAZOMIB CITRATE
  3. REVLIMID [Suspect]
     Active Substance: LENALIDOMIDE
  4. DEXAMETHASONE [Concomitant]
     Active Substance: DEXAMETHASONE
  5. CYCLIZINE [Concomitant]
     Active Substance: CYCLIZINE
  6. CO-TRIMOXAZOLE (TRIMETHOPRIM;?SULPHAMETHOXAZOLE) [Concomitant]
  7. ACYCLOVIR [Suspect]
     Active Substance: ACYCLOVIR

REACTIONS (1)
  - Nephrolithiasis [Unknown]
